FAERS Safety Report 14535022 (Version 3)
Quarter: 2018Q1

REPORT INFORMATION
  Report Type: Report from Study
  Country: US (occurrence: US)
  Receive Date: 20180215
  Receipt Date: 20180307
  Transmission Date: 20180509
  Serious: Yes (Hospitalization, Other)
  Sender: FDA-Public Use
  Company Number: US-GILEAD-2018-0318015

PATIENT
  Age: 38 Year
  Sex: Female

DRUGS (5)
  1. AMBRISENTAN [Suspect]
     Active Substance: AMBRISENTAN
     Indication: PRODUCT USED FOR UNKNOWN INDICATION
     Dosage: 10 MG, QD
     Route: 065
     Dates: start: 20081203
  2. REVATIO [Concomitant]
     Active Substance: SILDENAFIL CITRATE
  3. VELETRI [Concomitant]
     Active Substance: EPOPROSTENOL
  4. COUMADIN [Concomitant]
     Active Substance: WARFARIN SODIUM
  5. SODIUM CHLORIDE. [Suspect]
     Active Substance: SODIUM CHLORIDE
     Indication: PRODUCT USED FOR UNKNOWN INDICATION
     Dosage: UNK
     Route: 065

REACTIONS (2)
  - Device related infection [Unknown]
  - Swelling [Unknown]
